FAERS Safety Report 10243550 (Version 1)
Quarter: 2014Q2

REPORT INFORMATION
  Report Type: Spontaneous
  Country: US (occurrence: US)
  Receive Date: 20140618
  Receipt Date: 20140618
  Transmission Date: 20141212
  Serious: Yes (Other)
  Sender: FDA-Public Use
  Company Number: US-PFIZER INC-2014166240

PATIENT
  Age: 63 Year
  Sex: Female

DRUGS (3)
  1. XELJANZ [Suspect]
     Indication: RHEUMATOID ARTHRITIS
     Dosage: 5 MG, 2X/DAY
     Route: 048
     Dates: start: 20140522
  2. BIOTENE [Concomitant]
     Dosage: UNK
  3. VALTREX [Concomitant]
     Dosage: UNK

REACTIONS (4)
  - Squamous cell carcinoma [Unknown]
  - Gingival ulceration [Not Recovered/Not Resolved]
  - Tongue blistering [Not Recovered/Not Resolved]
  - Paraesthesia oral [Not Recovered/Not Resolved]
